FAERS Safety Report 12113198 (Version 1)
Quarter: 2016Q1

REPORT INFORMATION
  Report Type: Spontaneous
  Country: IT (occurrence: IT)
  Receive Date: 20160225
  Receipt Date: 20160225
  Transmission Date: 20160526
  Serious: Yes (Other)
  Sender: FDA-Public Use
  Company Number: IT-ASTRAZENECA-2016SE18000

PATIENT
  Age: 29570 Day
  Sex: Female
  Weight: 70 kg

DRUGS (5)
  1. OLPREZIDE [Concomitant]
     Active Substance: HYDROCHLOROTHIAZIDE\OLMESARTAN MEDOXOMIL
     Indication: HYPERTENSION
  2. ZYLORIC [Concomitant]
     Active Substance: ALLOPURINOL
     Indication: GOUT
     Route: 048
  3. TARGOSID [Suspect]
     Active Substance: TEICOPLANIN
     Indication: PSEUDOMONAS INFECTION
     Route: 042
     Dates: start: 20160213, end: 20160218
  4. PANTORC [Concomitant]
     Active Substance: PANTOPRAZOLE SODIUM
  5. MERREM [Suspect]
     Active Substance: MEROPENEM
     Indication: PSEUDOMONAS INFECTION
     Route: 042
     Dates: start: 20160213, end: 20160218

REACTIONS (2)
  - Hypercreatininaemia [Unknown]
  - Hyperbilirubinaemia [Unknown]

NARRATIVE: CASE EVENT DATE: 20160214
